FAERS Safety Report 7439879-8 (Version None)
Quarter: 2011Q2

REPORT INFORMATION
  Report Type: 
  Country: None (occurrence: None)
  Receive Date: 20110427
  Receipt Date: 20110426
  Transmission Date: 20111010
  Serious: No
  Sender: FDA-Public Use
  Company Number: US-ALLERGAN-1105593US

PATIENT
  Sex: Male

DRUGS (1)
  1. SANCTURA XR [Suspect]
     Indication: HYPERTONIC BLADDER
     Dosage: 60 MG, QAM
     Route: 048
     Dates: start: 20110201, end: 20110419

REACTIONS (4)
  - DRUG INEFFECTIVE [None]
  - CONSTIPATION [None]
  - EXPIRED DRUG ADMINISTERED [None]
  - DRY MOUTH [None]
